FAERS Safety Report 24678343 (Version 1)
Quarter: 2024Q4

REPORT INFORMATION
  Report Type: Report from Study
  Country: US (occurrence: US)
  Receive Date: 20241129
  Receipt Date: 20241129
  Transmission Date: 20250115
  Serious: No
  Sender: ASTELLAS
  Company Number: US-ASTELLAS-2024-AER-020855

PATIENT

DRUGS (1)
  1. AVACINCAPTAD PEGOL [Suspect]
     Active Substance: AVACINCAPTAD PEGOL
     Indication: Dry age-related macular degeneration
     Route: 065

REACTIONS (2)
  - Needle issue [Unknown]
  - Intercepted product preparation error [Unknown]
